FAERS Safety Report 21633096 (Version 1)
Quarter: 2022Q4

REPORT INFORMATION
  Report Type: Report from Study
  Country: US (occurrence: US)
  Receive Date: 20221123
  Receipt Date: 20221123
  Transmission Date: 20230113
  Serious: Yes (Hospitalization)
  Sender: FDA-Public Use
  Company Number: US-ABBVIE-22K-163-4501225-00

PATIENT
  Sex: Male

DRUGS (1)
  1. IMBRUVICA [Suspect]
     Active Substance: IBRUTINIB
     Indication: Chronic lymphocytic leukaemia
     Route: 048
     Dates: start: 20140814

REACTIONS (29)
  - Hospitalisation [Unknown]
  - Dry mouth [Unknown]
  - Stomatitis [Unknown]
  - Nausea [Unknown]
  - Peripheral swelling [Unknown]
  - Insomnia [Unknown]
  - Emotional distress [Unknown]
  - Dehydration [Unknown]
  - Dizziness [Unknown]
  - Contusion [Unknown]
  - Rash [Unknown]
  - Depression [Unknown]
  - Gingival pain [Unknown]
  - Anhedonia [Unknown]
  - Cellulitis [Unknown]
  - Muscle haemorrhage [Unknown]
  - Skin ulcer [Unknown]
  - Hyperactive pharyngeal reflex [Unknown]
  - Pain [Unknown]
  - Muscle spasms [Unknown]
  - Diarrhoea [Unknown]
  - Anxiety [Unknown]
  - Sinusitis [Unknown]
  - Dental caries [Unknown]
  - Tooth loss [Unknown]
  - Haemorrhage [Unknown]
  - Feeding disorder [Unknown]
  - Haematoma [Unknown]
  - Discomfort [Unknown]
